FAERS Safety Report 24794871 (Version 1)
Quarter: 2024Q4

REPORT INFORMATION
  Report Type: Spontaneous
  Country: US (occurrence: None)
  Receive Date: 20241231
  Receipt Date: 20241231
  Transmission Date: 20250115
  Serious: Yes (Hospitalization)
  Sender: Public
  Company Number: None

PATIENT
  Sex: Female

DRUGS (9)
  1. TACROLIMUS [Suspect]
     Active Substance: TACROLIMUS
     Indication: Renal transplant
     Dosage: FREQ: TAKE 4 CAPSULES (4 MG) BY MOUTH EVERY TWELVE HOURS.?
     Route: 048
     Dates: start: 20200304
  2. ALBUTEROL AER HFA [Concomitant]
  3. ALLOPURINOL [Concomitant]
     Active Substance: ALLOPURINOL
  4. AMLODIPINE [Concomitant]
     Active Substance: AMLODIPINE BESYLATE
  5. BENZONATATE [Concomitant]
     Active Substance: BENZONATATE
  6. BUPROPION HYDROCHLORIDE [Concomitant]
     Active Substance: BUPROPION HYDROCHLORIDE
  7. CALCITRIOL [Concomitant]
     Active Substance: CALCITRIOL
  8. CALCIUM ACETATE [Concomitant]
     Active Substance: CALCIUM ACETATE
  9. CARVEDILOL [Concomitant]
     Active Substance: CARVEDILOL

REACTIONS (3)
  - Pneumonia [None]
  - Gastrointestinal infection [None]
  - Therapy interrupted [None]
